FAERS Safety Report 17292536 (Version 1)
Quarter: 2020Q1

REPORT INFORMATION
  Report Type: Spontaneous
  Country: CN (occurrence: CN)
  Receive Date: 20200121
  Receipt Date: 20200121
  Transmission Date: 20200409
  Serious: Yes (Hospitalization)
  Sender: FDA-Public Use
  Company Number: CN-BAYER-2019-235980

PATIENT
  Sex: Female

DRUGS (3)
  1. MIRENA [Suspect]
     Active Substance: LEVONORGESTREL
     Indication: ADENOMYOSIS
     Dosage: 20 MCG/24HR, CONT
     Route: 015
     Dates: start: 20190619, end: 20190903
  2. MIRENA [Suspect]
     Active Substance: LEVONORGESTREL
  3. YAZ [Suspect]
     Active Substance: DROSPIRENONE\ETHINYL ESTRADIOL
     Dosage: UNK
     Route: 048
     Dates: start: 201909

REACTIONS (5)
  - Therapeutic response unexpected [None]
  - Menorrhagia [Recovering/Resolving]
  - Device use issue [None]
  - Vaginal haemorrhage [Recovering/Resolving]
  - Off label use of device [None]

NARRATIVE: CASE EVENT DATE: 2019
